FAERS Safety Report 19087493 (Version 1)
Quarter: 2021Q2

REPORT INFORMATION
  Report Type: Spontaneous
  Country: US (occurrence: US)
  Receive Date: 20210402
  Receipt Date: 20210402
  Transmission Date: 20210717
  Serious: No
  Sender: FDA-Public Use
  Company Number: None

PATIENT
  Age: 52 Year
  Sex: Female
  Weight: 110.25 kg

DRUGS (14)
  1. AMINONPYRADIDE [Concomitant]
  2. CALCIUM [Concomitant]
     Active Substance: CALCIUM
  3. BACLOFEN. [Concomitant]
     Active Substance: BACLOFEN
  4. LOROZAPAM [Concomitant]
  5. SELENIUM [Concomitant]
     Active Substance: SELENIUM
  6. BIOTIN [Concomitant]
     Active Substance: BIOTIN
  7. VITAMIN D3 [Concomitant]
     Active Substance: CHOLECALCIFEROL
  8. MAGNESIUM [Concomitant]
     Active Substance: MAGNESIUM
  9. MULTIVITAMIN [Concomitant]
     Active Substance: VITAMINS
  10. OCREVUS [Suspect]
     Active Substance: OCRELIZUMAB
     Indication: MULTIPLE SCLEROSIS
     Dates: start: 20190124, end: 20210108
  11. SUPER B COMPLEX TURMERIC [Concomitant]
  12. TYLENOL 8HR [Concomitant]
     Active Substance: ACETAMINOPHEN
  13. FLAX OIL [Concomitant]
  14. LORSARTAN [Concomitant]
     Active Substance: LOSARTAN

REACTIONS (4)
  - Dry skin [None]
  - Alopecia [None]
  - Asthenia [None]
  - Multiple sclerosis [None]
